FAERS Safety Report 6538863-6 (Version None)
Quarter: 2010Q1

REPORT INFORMATION
  Report Type: 
  Country: None (occurrence: None)
  Receive Date: 20100112
  Receipt Date: 20091230
  Transmission Date: 20100710
  Serious: Yes (Hospitalization)
  Sender: FDA-Public Use
  Company Number: SPV1-2009-02635

PATIENT
  Age: 10 Year
  Sex: Male
  Weight: 38.2 kg

DRUGS (4)
  1. ELAPRASE [Suspect]
     Indication: MUCOPOLYSACCHARIDOSIS II
     Dosage: 18 MG, 1X/WEEK, IV DRIP
     Route: 041
     Dates: start: 20081223
  2. CETIRIZINE HCL [Concomitant]
  3. HYDROCORTONE [Concomitant]
  4. ACETAMINOPHEN [Concomitant]

REACTIONS (5)
  - COUGH [None]
  - DYSPHONIA [None]
  - INFUSION RELATED REACTION [None]
  - OEDEMA [None]
  - URTICARIA [None]
